FAERS Safety Report 5451031-4 (Version None)
Quarter: 2007Q3

REPORT INFORMATION
  Report Type: 
  Country: None (occurrence: None)
  Receive Date: 20070911
  Receipt Date: 20070904
  Transmission Date: 20080115
  Serious: Yes (Death, Hospitalization)
  Sender: FDA-Public Use
  Company Number: 028-21880-07070755

PATIENT
  Age: 67 Year
  Sex: Male
  Weight: 75.5 kg

DRUGS (4)
  1. CC-5013 (LENALIDOMIDE) (CAPSULES) [Suspect]
     Indication: NON-HODGKIN'S LYMPHOMA
     Dosage: 25 MG, QD X21 DAYS, ORAL
     Route: 048
     Dates: start: 20070707, end: 20070713
  2. LEVAQUIN [Concomitant]
  3. LASIX [Concomitant]
  4. PLATELETS (PLATELETS) [Concomitant]

REACTIONS (7)
  - HAEMOPTYSIS [None]
  - LUNG CONSOLIDATION [None]
  - LUNG INFECTION [None]
  - LUNG INFILTRATION [None]
  - PLEURAL EFFUSION [None]
  - PNEUMONIA [None]
  - RESPIRATORY FAILURE [None]
